FAERS Safety Report 8284243-5 (Version None)
Quarter: 2012Q2

REPORT INFORMATION
  Report Type: 
  Country: None (occurrence: None)
  Receive Date: 20120413
  Receipt Date: 20120112
  Transmission Date: 20120825
  Serious: No
  Sender: FDA-Public Use
  Company Number: US-ASTRAZENECA-2011SE35860

PATIENT
  Age: 63 Year
  Sex: Female

DRUGS (5)
  1. PLAVIX [Concomitant]
  2. METFORMIN HCL [Concomitant]
  3. NEXIUM [Suspect]
     Route: 048
  4. ASPIRIN [Concomitant]
  5. CYMBALTA [Concomitant]

REACTIONS (4)
  - MALAISE [None]
  - DRUG DOSE OMISSION [None]
  - PAIN [None]
  - RHEUMATOID ARTHRITIS [None]
